FAERS Safety Report 5308570-6 (Version None)
Quarter: 2007Q2

REPORT INFORMATION
  Report Type: 
  Country: None (occurrence: None)
  Receive Date: 20070423
  Receipt Date: 20070423
  Transmission Date: 20071010
  Serious: Yes (Other)
  Sender: FDA-Public Use
  Company Number: None

PATIENT
  Age: 26 Year
  Sex: Male
  Weight: 79.3795 kg

DRUGS (1)
  1. LEVAQUIN [Suspect]
     Indication: PROSTATE INFECTION
     Dosage: 500MG ONCE A DAY PO
     Route: 048
     Dates: start: 20070320, end: 20070420

REACTIONS (4)
  - BLINDNESS [None]
  - CHEST PAIN [None]
  - HYPERHIDROSIS [None]
  - PALPITATIONS [None]
